FAERS Safety Report 5218971-2 (Version None)
Quarter: 2007Q1

REPORT INFORMATION
  Report Type: 
  Country: None (occurrence: None)
  Receive Date: 20070125
  Receipt Date: 20070115
  Transmission Date: 20070707
  Serious: Yes (Other)
  Sender: FDA-Public Use
  Company Number: DE-ROCHE-426253

PATIENT
  Age: 56 Year
  Sex: Female
  Weight: 49.5 kg

DRUGS (19)
  1. CELLCEPT [Suspect]
     Route: 065
     Dates: start: 20050415, end: 20050515
  2. CELLCEPT [Suspect]
     Route: 065
     Dates: start: 20050515, end: 20050727
  3. VALCYTE [Suspect]
     Route: 065
     Dates: start: 20050415, end: 20050717
  4. VALCYTE [Suspect]
     Route: 065
     Dates: start: 20050819, end: 20050915
  5. VALCYTE [Suspect]
     Route: 065
     Dates: start: 20051015
  6. VALCYTE [Suspect]
     Dosage: LONG TERM TREATMENT FOR THE INDICATION OF EBV INFECTION.
     Route: 065
     Dates: start: 20060228
  7. SANDIMMUNE [Concomitant]
  8. CYCLOSPORINE [Concomitant]
     Dosage: DOSE AS NEEDED TO REACH TARGET CONCENTRATION OF 240 NG/ML.
  9. PREDNISONE [Concomitant]
     Dosage: 10MG DAY 16-45 POST OP. LATER 7.5MG/DAY, 30MG AND 19.5MG BID.
  10. EPIVIR [Concomitant]
     Dosage: FOR SIX MONTHS
     Dates: start: 20050415
  11. PANTOPRAZOL [Concomitant]
     Dosage: 1-0-1
  12. URSODIOL [Concomitant]
  13. ACC LONG [Concomitant]
     Dosage: 600, 1-0-1
  14. MAGNESIUM VERLA [Concomitant]
  15. MULTIVITAMIN NOS [Concomitant]
  16. TAVOR [Concomitant]
     Indication: DEPRESSION
  17. VENLAFAXINE HCL [Concomitant]
     Indication: DEPRESSION
     Dates: start: 20050809
  18. SAROTEN [Concomitant]
     Dates: start: 20051115, end: 20060215
  19. SAROTEN [Concomitant]
     Dates: start: 20060215

REACTIONS (1)
  - AGRANULOCYTOSIS [None]
